FAERS Safety Report 26010899 (Version 3)
Quarter: 2025Q4

REPORT INFORMATION
  Report Type: Report from Study
  Country: US (occurrence: US)
  Receive Date: 20251107
  Receipt Date: 20251124
  Transmission Date: 20260117
  Serious: Yes (Death)
  Sender: BAUSCH AND LOMB
  Company Number: US-BAUSCH-BH-2025-019967

PATIENT
  Age: 89 Year
  Sex: Male

DRUGS (1)
  1. XIFAXAN [Suspect]
     Active Substance: RIFAXIMIN
     Indication: Hepatic encephalopathy
     Route: 048
     Dates: start: 20240926

REACTIONS (1)
  - Death [Fatal]

NARRATIVE: CASE EVENT DATE: 20250324
